FAERS Safety Report 19237279 (Version 1)
Quarter: 2021Q2

REPORT INFORMATION
  Report Type: Spontaneous
  Country: US (occurrence: US)
  Receive Date: 20210510
  Receipt Date: 20210510
  Transmission Date: 20210717
  Serious: No
  Sender: FDA-Public Use
  Company Number: US-SA-2021SA130138

PATIENT
  Age: 67 Year
  Sex: Female

DRUGS (1)
  1. CAPRELSA [Suspect]
     Active Substance: VANDETANIB
     Indication: THYROID DISORDER
     Dosage: 300 MG, QOD
     Route: 048
     Dates: start: 20210405

REACTIONS (2)
  - Hypertension [Unknown]
  - Taste disorder [Unknown]
